FAERS Safety Report 14799514 (Version 4)
Quarter: 2018Q2

REPORT INFORMATION
  Report Type: Spontaneous
  Country: US (occurrence: US)
  Receive Date: 20180424
  Receipt Date: 20180606
  Transmission Date: 20180711
  Serious: No
  Sender: FDA-Public Use
  Company Number: PHHY2018US067510

PATIENT
  Age: 76 Year
  Sex: Female

DRUGS (1)
  1. GENTEAL PF [Suspect]
     Active Substance: HYPROMELLOSE 2910 (4000 MPA.S)
     Indication: DRY EYE
     Dosage: 2 GTT, UNK
     Route: 047

REACTIONS (6)
  - Eye irritation [Recovering/Resolving]
  - Incorrect dosage administered [Unknown]
  - Eye pain [Recovering/Resolving]
  - Product dropper issue [Unknown]
  - Eye infection [Recovering/Resolving]
  - Eye allergy [Recovering/Resolving]

NARRATIVE: CASE EVENT DATE: 20180414
